FAERS Safety Report 5040423-3 (Version None)
Quarter: 2006Q2

REPORT INFORMATION
  Report Type: 
  Country: None (occurrence: None)
  Receive Date: 20060630
  Receipt Date: 20060623
  Transmission Date: 20061013
  Serious: Yes (Life-Threatening, Other)
  Sender: FDA-Public Use
  Company Number: 13413430

PATIENT
  Age: 12 Month
  Sex: Female

DRUGS (4)
  1. LAMIVUDINE [Suspect]
     Indication: HIV INFECTION
     Dosage: 3ML TWICE PER DAY
     Route: 048
     Dates: start: 20060308
  2. ATAZANAVIR [Suspect]
     Indication: HIV INFECTION
     Dosage: 150MG PER DAY
     Route: 048
     Dates: start: 20060308
  3. STAVUDINE [Suspect]
     Indication: HIV INFECTION
     Dosage: 8ML TWICE PER DAY
     Route: 048
     Dates: start: 20060308
  4. RITONAVIR [Suspect]
     Indication: HIV INFECTION
     Dosage: .4ML TWICE PER DAY
     Route: 048
     Dates: start: 20060308

REACTIONS (4)
  - ALANINE AMINOTRANSFERASE INCREASED [None]
  - ASPARTATE AMINOTRANSFERASE INCREASED [None]
  - BLOOD ALKALINE PHOSPHATASE INCREASED [None]
  - GAMMA-GLUTAMYLTRANSFERASE INCREASED [None]
